FAERS Safety Report 20345041 (Version 7)
Quarter: 2025Q3

REPORT INFORMATION
  Report Type: Spontaneous
  Country: EU (occurrence: EU)
  Receive Date: 20220118
  Receipt Date: 20250812
  Transmission Date: 20251020
  Serious: Yes (Hospitalization, Other)
  Sender: MYLAN
  Company Number: EU-EMA-DD-20191217-agrahari_p-105347

PATIENT
  Age: 62 Year
  Sex: Male

DRUGS (104)
  1. MYCOPHENOLIC ACID [Suspect]
     Active Substance: MYCOPHENOLIC ACID
     Indication: Immunosuppressant drug therapy
     Route: 065
  2. MYCOPHENOLIC ACID [Suspect]
     Active Substance: MYCOPHENOLIC ACID
  3. MYCOPHENOLIC ACID [Suspect]
     Active Substance: MYCOPHENOLIC ACID
  4. MYCOPHENOLIC ACID [Suspect]
     Active Substance: MYCOPHENOLIC ACID
     Route: 065
  5. MYCOPHENOLIC ACID [Suspect]
     Active Substance: MYCOPHENOLIC ACID
     Route: 065
  6. MYCOPHENOLIC ACID [Suspect]
     Active Substance: MYCOPHENOLIC ACID
  7. MYCOPHENOLIC ACID [Suspect]
     Active Substance: MYCOPHENOLIC ACID
  8. MYCOPHENOLIC ACID [Suspect]
     Active Substance: MYCOPHENOLIC ACID
     Route: 065
  9. GLICLAZIDE [Suspect]
     Active Substance: GLICLAZIDE
     Indication: Diabetes mellitus
     Dosage: 60 MILLIGRAM, QD (60 MG, QD)
  10. GLICLAZIDE [Suspect]
     Active Substance: GLICLAZIDE
     Indication: Diabetes mellitus management
     Dosage: 60 MILLIGRAM, QD (60 MG, QD)
  11. GLICLAZIDE [Suspect]
     Active Substance: GLICLAZIDE
     Dosage: 60 MILLIGRAM, QD (60 MG, QD)
     Route: 065
  12. GLICLAZIDE [Suspect]
     Active Substance: GLICLAZIDE
     Dosage: 60 MILLIGRAM, QD (60 MG, QD)
     Route: 065
  13. GLICLAZIDE [Suspect]
     Active Substance: GLICLAZIDE
     Dosage: 60 MILLIGRAM, QD (60 MG, UNK)
     Dates: start: 2012
  14. GLICLAZIDE [Suspect]
     Active Substance: GLICLAZIDE
     Dosage: 60 MILLIGRAM, QD (60 MG, UNK)
     Dates: start: 2012
  15. GLICLAZIDE [Suspect]
     Active Substance: GLICLAZIDE
     Dosage: 60 MILLIGRAM, QD (60 MG, UNK)
     Route: 048
     Dates: start: 2012
  16. GLICLAZIDE [Suspect]
     Active Substance: GLICLAZIDE
     Dosage: 60 MILLIGRAM, QD (60 MG, UNK)
     Route: 048
     Dates: start: 2012
  17. AMLODIPINE [Suspect]
     Active Substance: AMLODIPINE BESYLATE
     Indication: Hypertension
  18. AMLODIPINE [Suspect]
     Active Substance: AMLODIPINE BESYLATE
     Route: 065
  19. AMLODIPINE [Suspect]
     Active Substance: AMLODIPINE BESYLATE
     Route: 065
  20. AMLODIPINE [Suspect]
     Active Substance: AMLODIPINE BESYLATE
  21. DOXAZOSIN [Suspect]
     Active Substance: DOXAZOSIN MESYLATE
     Indication: Hypertension
  22. DOXAZOSIN [Suspect]
     Active Substance: DOXAZOSIN MESYLATE
     Route: 065
  23. DOXAZOSIN [Suspect]
     Active Substance: DOXAZOSIN MESYLATE
     Route: 065
  24. DOXAZOSIN [Suspect]
     Active Substance: DOXAZOSIN MESYLATE
  25. METFORMIN [Suspect]
     Active Substance: METFORMIN HYDROCHLORIDE
     Indication: Blood glucose increased
     Dosage: 500 MILLIGRAM, Q8H (500 MG, TID  )
  26. METFORMIN [Suspect]
     Active Substance: METFORMIN HYDROCHLORIDE
     Indication: Blood glucose fluctuation
     Dosage: 500 MILLIGRAM, Q8H (500 MG, TID  )
  27. METFORMIN [Suspect]
     Active Substance: METFORMIN HYDROCHLORIDE
     Indication: Diabetes mellitus management
     Dosage: 500 MILLIGRAM, Q8H (500 MG, TID  )
     Route: 065
  28. METFORMIN [Suspect]
     Active Substance: METFORMIN HYDROCHLORIDE
     Indication: Diabetes mellitus
     Dosage: 500 MILLIGRAM, Q8H (500 MG, TID  )
     Route: 065
  29. METFORMIN [Suspect]
     Active Substance: METFORMIN HYDROCHLORIDE
     Dosage: 1500 MILLIGRAM, QD, 3 ? 500 MG
  30. METFORMIN [Suspect]
     Active Substance: METFORMIN HYDROCHLORIDE
     Dosage: 1500 MILLIGRAM, QD, 3 ? 500 MG
  31. METFORMIN [Suspect]
     Active Substance: METFORMIN HYDROCHLORIDE
     Dosage: 1500 MILLIGRAM, QD, 3 ? 500 MG
     Route: 065
  32. METFORMIN [Suspect]
     Active Substance: METFORMIN HYDROCHLORIDE
     Dosage: 1500 MILLIGRAM, QD, 3 ? 500 MG
     Route: 065
  33. ATORVASTATIN [Suspect]
     Active Substance: ATORVASTATIN
     Indication: Hypotension
     Dosage: 20 MILLIGRAM, QD, 20 MG, STARTED 6 YEARS AGO
     Dates: start: 201207
  34. ATORVASTATIN [Suspect]
     Active Substance: ATORVASTATIN
     Dosage: 20 MILLIGRAM, QD, 20 MG, STARTED 6 YEARS AGO
     Route: 065
     Dates: start: 201207
  35. ATORVASTATIN [Suspect]
     Active Substance: ATORVASTATIN
     Dosage: 20 MILLIGRAM, QD, 20 MG, STARTED 6 YEARS AGO
     Route: 065
     Dates: start: 201207
  36. ATORVASTATIN [Suspect]
     Active Substance: ATORVASTATIN
     Dosage: 20 MILLIGRAM, QD, 20 MG, STARTED 6 YEARS AGO
     Dates: start: 201207
  37. TACROLIMUS [Suspect]
     Active Substance: TACROLIMUS
     Indication: Immunosuppressant drug therapy
  38. TACROLIMUS [Suspect]
     Active Substance: TACROLIMUS
     Route: 065
  39. TACROLIMUS [Suspect]
     Active Substance: TACROLIMUS
     Route: 065
  40. TACROLIMUS [Suspect]
     Active Substance: TACROLIMUS
  41. TACROLIMUS [Suspect]
     Active Substance: TACROLIMUS
     Route: 065
  42. TACROLIMUS [Suspect]
     Active Substance: TACROLIMUS
     Route: 065
  43. TACROLIMUS [Suspect]
     Active Substance: TACROLIMUS
  44. TACROLIMUS [Suspect]
     Active Substance: TACROLIMUS
  45. TACROLIMUS [Suspect]
     Active Substance: TACROLIMUS
  46. TACROLIMUS [Suspect]
     Active Substance: TACROLIMUS
     Route: 065
  47. TACROLIMUS [Suspect]
     Active Substance: TACROLIMUS
  48. TACROLIMUS [Suspect]
     Active Substance: TACROLIMUS
     Route: 065
  49. BISOPROLOL FUMARATE [Suspect]
     Active Substance: BISOPROLOL FUMARATE
     Indication: Hypertension
  50. BISOPROLOL FUMARATE [Suspect]
     Active Substance: BISOPROLOL FUMARATE
     Route: 065
  51. BISOPROLOL FUMARATE [Suspect]
     Active Substance: BISOPROLOL FUMARATE
     Route: 065
  52. BISOPROLOL FUMARATE [Suspect]
     Active Substance: BISOPROLOL FUMARATE
  53. PREDNISONE [Suspect]
     Active Substance: PREDNISONE
     Indication: Immunosuppressant drug therapy
     Route: 065
  54. PREDNISONE [Suspect]
     Active Substance: PREDNISONE
  55. PREDNISONE [Suspect]
     Active Substance: PREDNISONE
  56. PREDNISONE [Suspect]
     Active Substance: PREDNISONE
     Route: 065
  57. PREDNISONE [Suspect]
     Active Substance: PREDNISONE
  58. PREDNISONE [Suspect]
     Active Substance: PREDNISONE
  59. PREDNISONE [Suspect]
     Active Substance: PREDNISONE
     Route: 065
  60. PREDNISONE [Suspect]
     Active Substance: PREDNISONE
     Route: 065
  61. PREDNISONE [Suspect]
     Active Substance: PREDNISONE
     Dosage: 5 MILLIGRAM, QD
     Route: 065
     Dates: start: 2018
  62. PREDNISONE [Suspect]
     Active Substance: PREDNISONE
     Dosage: 5 MILLIGRAM, QD
     Route: 065
     Dates: start: 2018
  63. PREDNISONE [Suspect]
     Active Substance: PREDNISONE
     Dosage: 5 MILLIGRAM, QD
     Dates: start: 2018
  64. PREDNISONE [Suspect]
     Active Substance: PREDNISONE
     Dosage: 5 MILLIGRAM, QD
     Dates: start: 2018
  65. PREDNISONE [Suspect]
     Active Substance: PREDNISONE
  66. PREDNISONE [Suspect]
     Active Substance: PREDNISONE
  67. PREDNISONE [Suspect]
     Active Substance: PREDNISONE
     Route: 065
  68. PREDNISONE [Suspect]
     Active Substance: PREDNISONE
     Route: 065
  69. GLICLAZIDE [Suspect]
     Active Substance: GLICLAZIDE
     Indication: Hyperglycaemia
     Dosage: 60 MILLIGRAM, QD
     Dates: start: 2012
  70. GLICLAZIDE [Suspect]
     Active Substance: GLICLAZIDE
     Indication: Diabetes mellitus
     Dosage: 60 MILLIGRAM, QD
     Route: 065
     Dates: start: 2012
  71. GLICLAZIDE [Suspect]
     Active Substance: GLICLAZIDE
     Dosage: 60 MILLIGRAM, QD
     Route: 065
     Dates: start: 2012
  72. GLICLAZIDE [Suspect]
     Active Substance: GLICLAZIDE
     Dosage: 60 MILLIGRAM, QD
     Dates: start: 2012
  73. MYCOPHENOLATE SODIUM [Concomitant]
     Active Substance: MYCOPHENOLATE SODIUM
     Indication: Immunosuppressant drug therapy
  74. MYCOPHENOLATE SODIUM [Concomitant]
     Active Substance: MYCOPHENOLATE SODIUM
     Route: 065
  75. MYCOPHENOLATE SODIUM [Concomitant]
     Active Substance: MYCOPHENOLATE SODIUM
     Route: 065
  76. MYCOPHENOLATE SODIUM [Concomitant]
     Active Substance: MYCOPHENOLATE SODIUM
  77. INSULIN NOS [Concomitant]
     Active Substance: INSULIN NOS
     Indication: Diabetes mellitus
  78. INSULIN NOS [Concomitant]
     Active Substance: INSULIN NOS
     Indication: Blood glucose increased
     Route: 065
  79. INSULIN NOS [Concomitant]
     Active Substance: INSULIN NOS
     Route: 065
  80. INSULIN NOS [Concomitant]
     Active Substance: INSULIN NOS
  81. TACROLIMUS [Concomitant]
     Active Substance: TACROLIMUS
     Indication: Immunosuppressant drug therapy
  82. TACROLIMUS [Concomitant]
     Active Substance: TACROLIMUS
     Route: 065
  83. TACROLIMUS [Concomitant]
     Active Substance: TACROLIMUS
     Route: 065
  84. TACROLIMUS [Concomitant]
     Active Substance: TACROLIMUS
  85. BISOPROLOL [Concomitant]
     Active Substance: BISOPROLOL
     Indication: Hypertension
  86. BISOPROLOL [Concomitant]
     Active Substance: BISOPROLOL
     Route: 065
  87. BISOPROLOL [Concomitant]
     Active Substance: BISOPROLOL
     Route: 065
  88. BISOPROLOL [Concomitant]
     Active Substance: BISOPROLOL
  89. METFORMIN [Concomitant]
     Active Substance: METFORMIN HYDROCHLORIDE
     Indication: Diabetes mellitus
     Dosage: 1500 MILLIGRAM, QD (500 MG, TID)
  90. METFORMIN [Concomitant]
     Active Substance: METFORMIN HYDROCHLORIDE
     Dosage: 1500 MILLIGRAM, QD (500 MG, TID)
     Route: 065
  91. METFORMIN [Concomitant]
     Active Substance: METFORMIN HYDROCHLORIDE
     Dosage: 1500 MILLIGRAM, QD (500 MG, TID)
     Route: 065
  92. METFORMIN [Concomitant]
     Active Substance: METFORMIN HYDROCHLORIDE
     Dosage: 1500 MILLIGRAM, QD (500 MG, TID)
  93. ATORVASTATIN [Concomitant]
     Active Substance: ATORVASTATIN
     Indication: Product used for unknown indication
     Dosage: 20 MILLIGRAM, QD
     Dates: start: 201207
  94. ATORVASTATIN [Concomitant]
     Active Substance: ATORVASTATIN
     Dosage: 20 MILLIGRAM, QD
     Route: 065
     Dates: start: 201207
  95. ATORVASTATIN [Concomitant]
     Active Substance: ATORVASTATIN
     Dosage: 20 MILLIGRAM, QD
     Route: 065
     Dates: start: 201207
  96. ATORVASTATIN [Concomitant]
     Active Substance: ATORVASTATIN
     Dosage: 20 MILLIGRAM, QD
     Dates: start: 201207
  97. MYCOPHENOLATE MOFETIL [Concomitant]
     Active Substance: MYCOPHENOLATE MOFETIL
     Indication: Immunosuppressant drug therapy
  98. MYCOPHENOLATE MOFETIL [Concomitant]
     Active Substance: MYCOPHENOLATE MOFETIL
     Route: 065
  99. MYCOPHENOLATE MOFETIL [Concomitant]
     Active Substance: MYCOPHENOLATE MOFETIL
     Route: 065
  100. MYCOPHENOLATE MOFETIL [Concomitant]
     Active Substance: MYCOPHENOLATE MOFETIL
  101. MYCOPHENOLIC ACID [Concomitant]
     Active Substance: MYCOPHENOLIC ACID
     Indication: Immunosuppressant drug therapy
  102. MYCOPHENOLIC ACID [Concomitant]
     Active Substance: MYCOPHENOLIC ACID
     Route: 065
  103. MYCOPHENOLIC ACID [Concomitant]
     Active Substance: MYCOPHENOLIC ACID
     Route: 065
  104. MYCOPHENOLIC ACID [Concomitant]
     Active Substance: MYCOPHENOLIC ACID

REACTIONS (8)
  - Complications of transplanted kidney [Recovering/Resolving]
  - Diabetes mellitus [Recovered/Resolved]
  - Hyperglycaemia [Unknown]
  - Diarrhoea [Recovered/Resolved]
  - Hypertension [Unknown]
  - Dyspepsia [Recovered/Resolved]
  - Abdominal pain [Recovered/Resolved]
  - Blood glucose abnormal [Recovered/Resolved]

NARRATIVE: CASE EVENT DATE: 20180101
